FAERS Safety Report 9467010 (Version 1)
Quarter: 2013Q3

REPORT INFORMATION
  Report Type: Spontaneous
  Country: US (occurrence: US)
  Receive Date: 20130820
  Receipt Date: 20130820
  Transmission Date: 20140515
  Serious: Yes (Hospitalization)
  Sender: FDA-Public Use
  Company Number: US-GLAXOSMITHKLINE-A1035760A

PATIENT
  Age: 44 Year
  Sex: Female

DRUGS (1)
  1. FLOLAN [Suspect]
     Indication: PULMONARY ARTERIAL HYPERTENSION
     Dosage: 8NGKM CONTINUOUS
     Route: 042
     Dates: start: 20130708

REACTIONS (9)
  - Hospitalisation [Not Recovered/Not Resolved]
  - Flushing [Unknown]
  - Dizziness [Unknown]
  - Nausea [Unknown]
  - Oedema [Unknown]
  - Diarrhoea [Unknown]
  - Pain in jaw [Unknown]
  - Anxiety [Unknown]
  - Palpitations [Unknown]
